FAERS Safety Report 8276490 (Version 2)
Quarter: 2012Q4

REPORT INFORMATION
  Report Type: 
  Country: TR (occurrence: TR)
  Receive Date: 20111129
  Receipt Date: 20121105
  Transmission Date: 20130627
  Serious: Yes (Hospitalization)
  Sender: FDA-Public Use
  Company Number: TR-ACCORD-011415

PATIENT
  Age: 48 Year
  Sex: Female

DRUGS (2)
  1. LETROZOLE [Suspect]
     Indication: LOBULAR CARCINOMA OF BREAST
  2. IBANDRONIC ACID [Concomitant]
     Indication: LOBULAR CARCINOMA OF BREAST

REACTIONS (1)
  - Breast cancer metastatic [Unknown]
